FAERS Safety Report 25858536 (Version 1)
Quarter: 2025Q3

REPORT INFORMATION
  Report Type: Other
  Country: GB (occurrence: GB)
  Receive Date: 20250929
  Receipt Date: 20250929
  Transmission Date: 20251021
  Serious: Yes (Other)
  Sender: GLENMARK
  Company Number: GB-MHRA-TPP41316198C5836280YC1757588040721

PATIENT
  Age: 77 Year
  Sex: Female
  Weight: 84 kg

DRUGS (8)
  1. DAPAGLIFLOZIN [Suspect]
     Active Substance: DAPAGLIFLOZIN
     Indication: Ill-defined disorder
     Dosage: 10 MILLIGRAM, QD (DOSAGE FORM: TABLET)
     Route: 065
     Dates: start: 20250819
  2. CLOTRIMAZOLE [Concomitant]
     Active Substance: CLOTRIMAZOLE
     Indication: Ill-defined disorder
     Dosage: UNK, BID (APPLY TO THE AFFECTED AREA(S) TWICE A DAY)
     Route: 065
     Dates: start: 20250911
  3. CLOTRIMAZOLE [Concomitant]
     Active Substance: CLOTRIMAZOLE
     Indication: Ill-defined disorder
     Route: 067
     Dates: start: 20250911
  4. CICLESONIDE [Concomitant]
     Active Substance: CICLESONIDE
     Indication: Ill-defined disorder
     Dosage: 1 DOSAGE FORM, QD (ONE PUFF ONCE DAILY)
     Route: 065
     Dates: start: 20210212
  5. OMEPRAZOLE [Concomitant]
     Active Substance: OMEPRAZOLE
     Indication: Ill-defined disorder
     Dosage: UNK, QD, TAKE ONE DAILY - PLEASE MAKE APPOINTMENT FOR ME.
     Route: 065
     Dates: start: 20210212
  6. MONTELUKAST [Concomitant]
     Active Substance: MONTELUKAST
     Indication: Ill-defined disorder
     Route: 065
     Dates: start: 20240403
  7. FEXOFENADINE [Concomitant]
     Active Substance: FEXOFENADINE HYDROCHLORIDE
     Indication: Ill-defined disorder
     Dosage: 1 DOSAGE FORM, QD, TAKE ONE TABLET ONCE A DAY (AS ADVISED BY ALLER...
     Route: 065
     Dates: start: 20240404
  8. ALBUTEROL [Concomitant]
     Active Substance: ALBUTEROL
     Indication: Ill-defined disorder
     Dates: start: 20241017

REACTIONS (3)
  - Contusion [Recovering/Resolving]
  - Vulvovaginal discomfort [Recovering/Resolving]
  - Vulvovaginal pain [Unknown]

NARRATIVE: CASE EVENT DATE: 20250904
